FAERS Safety Report 20751718 (Version 1)
Quarter: 2022Q2

REPORT INFORMATION
  Report Type: Report from Study
  Country: MX (occurrence: MX)
  Receive Date: 20220426
  Receipt Date: 20220426
  Transmission Date: 20220721
  Serious: Yes (Other)
  Sender: FDA-Public Use
  Company Number: MX-NOVARTISPH-NVSC2022MX089555

PATIENT
  Sex: Female

DRUGS (2)
  1. TASIGNA [Suspect]
     Active Substance: NILOTINIB
     Indication: Chronic myeloid leukaemia
     Dosage: UNK
     Route: 048
  2. TASIGNA [Suspect]
     Active Substance: NILOTINIB
     Dosage: UNK
     Route: 048

REACTIONS (13)
  - Pleural effusion [Unknown]
  - Dyspnoea [Unknown]
  - Benign lung neoplasm [Unknown]
  - Somnolence [Unknown]
  - Eating disorder [Unknown]
  - Laziness [Unknown]
  - Feeling abnormal [Unknown]
  - Malaise [Unknown]
  - Nausea [Unknown]
  - Vomiting [Unknown]
  - Pain [Unknown]
  - Diarrhoea [Unknown]
  - Cytogenetic analysis abnormal [Unknown]
